FAERS Safety Report 12904750 (Version 2)
Quarter: 2016Q4

REPORT INFORMATION
  Report Type: Spontaneous
  Country: US (occurrence: US)
  Receive Date: 20161102
  Receipt Date: 20161121
  Transmission Date: 20170207
  Serious: No
  Sender: FDA-Public Use
  Company Number: US-GLAXOSMITHKLINE-US2016161458

PATIENT
  Age: 82 Year
  Sex: Female

DRUGS (6)
  1. BREO ELLIPTA [Suspect]
     Active Substance: FLUTICASONE FUROATE\VILANTEROL TRIFENATATE
     Indication: COUGH
     Dosage: 1 PUFF(S), QD
     Route: 055
     Dates: start: 20161028
  2. LEVOTHYROXIN [Concomitant]
     Active Substance: LEVOTHYROXINE
  3. METFORMIN [Concomitant]
     Active Substance: METFORMIN HYDROCHLORIDE
  4. BREO ELLIPTA [Suspect]
     Active Substance: FLUTICASONE FUROATE\VILANTEROL TRIFENATATE
     Indication: PRODUCTIVE COUGH
  5. CALCIUM [Concomitant]
     Active Substance: CALCIUM
  6. PRESERVISION [Concomitant]
     Active Substance: MINERALS\VITAMINS

REACTIONS (3)
  - Drug ineffective [Not Recovered/Not Resolved]
  - Product use issue [Not Recovered/Not Resolved]
  - Fatigue [Not Recovered/Not Resolved]

NARRATIVE: CASE EVENT DATE: 20161028
